FAERS Safety Report 9398919 (Version 1)
Quarter: 2013Q3

REPORT INFORMATION
  Report Type: Spontaneous
  Country: FR (occurrence: FR)
  Receive Date: 20130712
  Receipt Date: 20130712
  Transmission Date: 20140515
  Serious: Yes (Hospitalization)
  Sender: FDA-Public Use
  Company Number: FR-TEVA-417100ISR

PATIENT
  Age: 88 Year
  Sex: Male

DRUGS (4)
  1. FUROSEMIDE TEVA [Suspect]
     Dosage: 80 MILLIGRAM DAILY;
     Route: 048
     Dates: start: 201305, end: 20130608
  2. LISINOPRIL 20 MG [Concomitant]
  3. PREVISCAN [Concomitant]
  4. ALLOPURINOL 300MG [Concomitant]

REACTIONS (7)
  - Cardiac failure [Not Recovered/Not Resolved]
  - Dyspnoea [Not Recovered/Not Resolved]
  - Hypersomnia [Not Recovered/Not Resolved]
  - Oedema peripheral [Unknown]
  - Jugular vein distension [Unknown]
  - Hepatojugular reflux [Unknown]
  - Weight increased [Unknown]
